FAERS Safety Report 6457838-9 (Version None)
Quarter: 2009Q4

REPORT INFORMATION
  Report Type: 
  Country: None (occurrence: None)
  Receive Date: 20091120
  Receipt Date: 20091109
  Transmission Date: 20100525
  Serious: Yes (Hospitalization)
  Sender: FDA-Public Use
  Company Number: 2009AL007170

PATIENT
  Age: 25 Year
  Sex: Male

DRUGS (1)
  1. PHENYTOIN [Suspect]
     Indication: GRAND MAL CONVULSION
     Dosage: 100 MG; TID

REACTIONS (18)
  - ALBUMIN URINE PRESENT [None]
  - BLOOD CALCIUM DECREASED [None]
  - BLOOD CALCIUM INCREASED [None]
  - CONSTIPATION [None]
  - DECREASED APPETITE [None]
  - DIALYSIS [None]
  - DYSPNOEA [None]
  - FATIGUE [None]
  - GRAND MAL CONVULSION [None]
  - GRANULOMA [None]
  - HAEMOGLOBIN DECREASED [None]
  - NEPHROSCLEROSIS [None]
  - OEDEMA PERIPHERAL [None]
  - SWELLING FACE [None]
  - TUBERCULOSIS [None]
  - TUBULOINTERSTITIAL NEPHRITIS [None]
  - VOMITING [None]
  - WHITE BLOOD CELL COUNT INCREASED [None]
